FAERS Safety Report 4459384-0 (Version None)
Quarter: 2004Q3

REPORT INFORMATION
  Report Type: 
  Country: None (occurrence: None)
  Receive Date: 20040927
  Receipt Date: 20040923
  Transmission Date: 20050211
  Serious: Yes (Death)
  Sender: FDA-Public Use
  Company Number: PHFR2004GB03579

PATIENT
  Age: 83 Year
  Sex: Female

DRUGS (3)
  1. VOLTAREN [Suspect]
     Indication: ABDOMINAL PAIN
     Dosage: 75MG
     Route: 030
     Dates: start: 20040921, end: 20040921
  2. TRIMETHOPRIM [Concomitant]
     Route: 065
  3. LANSOPRAZOLE [Concomitant]
     Route: 065

REACTIONS (9)
  - CEREBRAL HAEMORRHAGE [None]
  - CONFUSIONAL STATE [None]
  - DEPRESSED LEVEL OF CONSCIOUSNESS [None]
  - DYSARTHRIA [None]
  - GLASGOW COMA SCALE ABNORMAL [None]
  - HAEMORRHAGIC STROKE [None]
  - HALLUCINATION [None]
  - LOSS OF CONSCIOUSNESS [None]
  - PARAESTHESIA [None]
